FAERS Safety Report 13450125 (Version 1)
Quarter: 2017Q2

REPORT INFORMATION
  Report Type: Spontaneous
  Country: US (occurrence: US)
  Receive Date: 20170417
  Receipt Date: 20170417
  Transmission Date: 20170830
  Serious: No
  Sender: FDA-Public Use
  Company Number: US-BION-20160721

PATIENT
  Sex: Female

DRUGS (1)
  1. NAPROXEN SODIUM CAPSULES, 220 MG [Suspect]
     Active Substance: NAPROXEN SODIUM
     Indication: BACK PAIN
     Dosage: 1-3 SOFT GELS
     Route: 048

REACTIONS (3)
  - Tongue discomfort [Unknown]
  - Product leakage [Unknown]
  - Product taste abnormal [Unknown]

NARRATIVE: CASE EVENT DATE: 20161115
